FAERS Safety Report 11342684 (Version 1)
Quarter: 2015Q3

REPORT INFORMATION
  Report Type: Report from Study
  Country: CA (occurrence: CA)
  Receive Date: 20150805
  Receipt Date: 20150805
  Transmission Date: 20151125
  Serious: Yes (Other)
  Sender: FDA-Public Use
  Company Number: PHHO2015CA012135

PATIENT
  Age: 76 Year
  Sex: Male
  Weight: 74 kg

DRUGS (5)
  1. FUROSEMIDE. [Concomitant]
     Active Substance: FUROSEMIDE
     Indication: CARDIAC FAILURE
     Dosage: 40 MG, QD
     Route: 048
     Dates: start: 20090824
  2. RAMIPRIL. [Concomitant]
     Active Substance: RAMIPRIL
     Indication: CARDIAC FAILURE
     Dosage: 2.5 MG, QD
     Route: 048
     Dates: start: 20140710
  3. QVA149 [Suspect]
     Active Substance: INVESTIGATIONAL PRODUCT
     Indication: CHRONIC OBSTRUCTIVE PULMONARY DISEASE
     Dosage: 110 MCG INDACATEROL AD 50 MCG GLYCOPYRRONIUM BROMIDE
     Route: 055
     Dates: start: 20150618
  4. WARFARIN [Concomitant]
     Active Substance: WARFARIN
     Indication: ATRIAL FIBRILLATION
     Dosage: 2 MG, QD
     Route: 048
     Dates: start: 20090824
  5. BISOPROLOL [Concomitant]
     Active Substance: BISOPROLOL
     Indication: CARDIAC FAILURE
     Dosage: 10 MG, QD
     Route: 048
     Dates: start: 20121031

REACTIONS (1)
  - Drug administration error [Recovered/Resolved]

NARRATIVE: CASE EVENT DATE: 20150618
